FAERS Safety Report 8965662 (Version 1)
Quarter: 2012Q4

REPORT INFORMATION
  Report Type: Spontaneous
  Country: US (occurrence: None)
  Receive Date: 20121212
  Receipt Date: 20121212
  Transmission Date: 20130627
  Serious: Yes (Hospitalization)
  Sender: FDA-Public Use
  Company Number: None

PATIENT
  Age: 56 Year
  Sex: Male

DRUGS (1)
  1. CEFTRIAXONE [Suspect]
     Indication: PHARYNGITIS
     Dosage: 500 MG   IM - 030
     Route: 030
     Dates: start: 20121127

REACTIONS (1)
  - Anaphylactic reaction [None]
